FAERS Safety Report 8537838-5 (Version None)
Quarter: 2012Q3

REPORT INFORMATION
  Report Type: 
  Country: None (occurrence: None)
  Receive Date: 20120725
  Receipt Date: 20120629
  Transmission Date: 20120928
  Serious: No
  Sender: FDA-Public Use
  Company Number: US-ASTRAZENECA-2000AU02218

PATIENT
  Sex: Female

DRUGS (2)
  1. ATACAND [Suspect]
     Route: 048
  2. ATACAND [Suspect]
     Indication: BLOOD PRESSURE INCREASED
     Dosage: DOSE: 8 MG
     Route: 048
     Dates: start: 20000508

REACTIONS (2)
  - DRY THROAT [None]
  - BLOOD PRESSURE INCREASED [None]
